FAERS Safety Report 16623771 (Version 1)
Quarter: 2019Q3

REPORT INFORMATION
  Report Type: Spontaneous
  Country: US (occurrence: US)
  Receive Date: 20190724
  Receipt Date: 20190724
  Transmission Date: 20191004
  Serious: No
  Sender: FDA-Public Use
  Company Number: US-ACCORD-118494

PATIENT
  Sex: Female

DRUGS (1)
  1. AMITRIPTYLINE ACCORD [Suspect]
     Active Substance: AMITRIPTYLINE
     Indication: ANXIETY
     Dosage: STRENGTH: 10 MG
     Route: 048

REACTIONS (3)
  - Product taste abnormal [Unknown]
  - Hypoaesthesia oral [Recovered/Resolved]
  - Product substitution issue [Unknown]
